FAERS Safety Report 9528163 (Version 3)
Quarter: 2013Q4

REPORT INFORMATION
  Report Type: Spontaneous
  Country: FR (occurrence: FR)
  Receive Date: 20130917
  Receipt Date: 20131006
  Transmission Date: 20140711
  Serious: Yes (Other)
  Sender: FDA-Public Use
  Company Number: PHHY2013FR081332

PATIENT
  Age: 73 Year
  Sex: Female

DRUGS (6)
  1. COTAREG [Suspect]
     Indication: HYPERTENSION
     Dosage: 1 DF (80 MG VALS,12.5 MG HCT), EVERY 2 DAYS
     Route: 048
     Dates: end: 20130913
  2. COTAREG [Suspect]
     Dosage: 1 DF (160 MG VALS, 12.5 MG HCT), , EVERY 2 DAYS
     Route: 048
     Dates: start: 20130913, end: 20130922
  3. COTAREG [Suspect]
     Dosage: 0.5 DF (160MG VALS, 12.5MG HCTZ), QD
     Route: 048
     Dates: start: 20130922
  4. TAREG [Suspect]
     Indication: HYPERTENSION
     Dosage: 1 DF (80 MG VALS), QD
     Route: 048
     Dates: end: 20130913
  5. TAREG [Suspect]
     Dosage: 1 DF (80 MG VALS), EVERY 2 DAYS
     Route: 048
     Dates: start: 20130914, end: 20130922
  6. TAREG [Suspect]
     Dosage: 1 DF (80MG VALSA), QD
     Route: 048
     Dates: start: 20130922

REACTIONS (6)
  - Blood pressure systolic increased [Recovered/Resolved]
  - Weight decreased [Unknown]
  - Blood pressure decreased [Recovered/Resolved]
  - Abdominal pain [Recovered/Resolved]
  - Dizziness [Unknown]
  - Wrong technique in drug usage process [Unknown]
